FAERS Safety Report 12613757 (Version 1)
Quarter: 2016Q3

REPORT INFORMATION
  Report Type: Spontaneous
  Country: IT (occurrence: IT)
  Receive Date: 20160802
  Receipt Date: 20160802
  Transmission Date: 20161109
  Serious: Yes (Hospitalization)
  Sender: FDA-Public Use
  Company Number: IT-BRISTOL-MYERS SQUIBB COMPANY-BMS-2016-060353

PATIENT
  Age: 84 Year
  Sex: Female

DRUGS (7)
  1. COUMADIN [Suspect]
     Active Substance: WARFARIN SODIUM
     Indication: ATRIAL FIBRILLATION
     Dosage: 1 UNIT, PRN
     Route: 048
     Dates: start: 20160101, end: 20160415
  2. ALDACTAZIDE [Concomitant]
     Active Substance: HYDROCHLOROTHIAZIDE\SPIRONOLACTONE
     Indication: PRODUCT USED FOR UNKNOWN INDICATION
     Dosage: UNK DF, UNK
     Route: 048
  3. DICLOFENAC [Interacting]
     Active Substance: DICLOFENAC
     Indication: FRACTURE PAIN
     Dosage: UNK
     Route: 030
     Dates: start: 20160413, end: 20160415
  4. LANOXIN (IGOXINA) [Concomitant]
     Indication: PRODUCT USED FOR UNKNOWN INDICATION
     Route: 065
  5. COUMADIN [Interacting]
     Active Substance: WARFARIN SODIUM
     Dosage: UNK
     Route: 048
  6. TARGIN [Interacting]
     Active Substance: NALOXONE HYDROCHLORIDE\OXYCODONE HYDROCHLORIDE
     Indication: FRACTURE PAIN
     Dosage: 1 DF, QD
     Route: 048
     Dates: start: 20160410, end: 20160415
  7. LIDOCAINE. [Concomitant]
     Active Substance: LIDOCAINE
     Indication: PRODUCT USED FOR UNKNOWN INDICATION
     Dosage: UNK
     Route: 062
     Dates: start: 20160413, end: 20160415

REACTIONS (3)
  - Anaemia [Recovered/Resolved]
  - Drug interaction [Recovered/Resolved]
  - Hypercoagulation [Recovered/Resolved]

NARRATIVE: CASE EVENT DATE: 20160415
